FAERS Safety Report 6647125-8 (Version None)
Quarter: 2010Q1

REPORT INFORMATION
  Report Type: 
  Country: None (occurrence: None)
  Receive Date: 20100323
  Receipt Date: 20100311
  Transmission Date: 20100710
  Serious: Yes (Hospitalization, Other)
  Sender: FDA-Public Use
  Company Number: PHEH2010US02859

PATIENT
  Sex: Female
  Weight: 93.7 kg

DRUGS (9)
  1. GLEEVEC [Suspect]
     Indication: GASTRIC CANCER
     Dosage: 400 MG, QD
     Route: 048
     Dates: start: 20090211
  2. GLEEVEC [Suspect]
     Indication: GASTROINTESTINAL STROMAL TUMOUR
     Dosage: 300MG
     Route: 048
     Dates: start: 20090814
  3. NITROGLYCERIN ^PHARMACIA + UPJOHN^ [Concomitant]
     Indication: CHEST PAIN
     Dosage: ONE 0.4 TAB EVERY 5 MINUTES MAX 3 DOSE IN 15 MINUTES AS NEEDED
     Route: 060
     Dates: start: 20090624
  4. CITALOPRAM HYDROBROMIDE [Concomitant]
     Indication: DEPRESSION
     Dosage: 20 MG, QD
     Route: 048
     Dates: start: 20090717
  5. DILTIAZEM HCL [Concomitant]
     Indication: BLOOD PRESSURE INCREASED
     Dosage: 240 MG, QD
     Route: 048
     Dates: start: 20090527
  6. ACETAMINOPHEN [Concomitant]
     Indication: PAIN
     Dosage: 500 MG TWO TABS DAILY AS NEEDED
     Route: 048
  7. PROMETHAZINE [Concomitant]
     Indication: NAUSEA
     Dosage: 25 MG EVERY 6 HOURS AS NEEDED
     Route: 048
     Dates: start: 20091001
  8. CALCIUM WITH VITAMIN D [Concomitant]
     Indication: SUPPLEMENTATION THERAPY
     Dosage: ONE TAB DAILY
     Route: 048
  9. MULTI-VITAMINS [Concomitant]
     Indication: SUPPLEMENTATION THERAPY
     Dosage: ONE TAB DAILY
     Route: 048

REACTIONS (11)
  - ABDOMINAL WALL ABSCESS [None]
  - CATHETER SITE EROSION [None]
  - CELLULITIS [None]
  - DIPHTHERIA [None]
  - GASTRECTOMY [None]
  - GASTROINTESTINAL STROMAL TUMOUR [None]
  - HERNIA REPAIR [None]
  - INCISIONAL HERNIA [None]
  - STAPHYLOCOCCAL INFECTION [None]
  - TRANSAMINASES INCREASED [None]
  - WOUND TREATMENT [None]
